FAERS Safety Report 18544947 (Version 5)
Quarter: 2020Q4

REPORT INFORMATION
  Report Type: Spontaneous
  Country: US (occurrence: US)
  Receive Date: 20201125
  Receipt Date: 20201210
  Transmission Date: 20210114
  Serious: Yes (Hospitalization)
  Sender: FDA-Public Use
  Company Number: US-BIOGEN-2020BI00947792

PATIENT
  Sex: Female

DRUGS (3)
  1. TECFIDERA [Interacting]
     Active Substance: DIMETHYL FUMARATE
     Route: 065
  2. TECFIDERA [Interacting]
     Active Substance: DIMETHYL FUMARATE
     Route: 065
  3. TECFIDERA [Suspect]
     Active Substance: DIMETHYL FUMARATE
     Indication: MULTIPLE SCLEROSIS
     Route: 065
     Dates: start: 20140926, end: 20200310

REACTIONS (5)
  - Anaemia [Unknown]
  - Cardiac murmur [Unknown]
  - Pneumonia [Not Recovered/Not Resolved]
  - Asthenia [Unknown]
  - Heart valve incompetence [Not Recovered/Not Resolved]
